FAERS Safety Report 14978731 (Version 1)
Quarter: 2018Q2

REPORT INFORMATION
  Report Type: Spontaneous
  Country: US (occurrence: US)
  Receive Date: 20180606
  Receipt Date: 20180606
  Transmission Date: 20180711
  Serious: No
  Sender: FDA-Public Use
  Company Number: US-009507513-1805USA014482

PATIENT
  Sex: Male

DRUGS (1)
  1. DULERA [Suspect]
     Active Substance: FORMOTEROL FUMARATE DIHYDRATE\MOMETASONE FUROATE
     Dosage: ^2 PUFFS IN THE MORNING AND 2 PUFFS IN THE EVENING (200MCG/5)^
     Route: 055

REACTIONS (2)
  - Product quality issue [Unknown]
  - Incorrect dosage administered [Unknown]
